FAERS Safety Report 17537952 (Version 1)
Quarter: 2020Q1

REPORT INFORMATION
  Report Type: Spontaneous
  Country: US (occurrence: US)
  Receive Date: 20200305
  Receipt Date: 20200305
  Transmission Date: 20200409
  Serious: Yes (Hospitalization)
  Sender: FDA-Public Use
  Company Number: None

PATIENT
  Age: 52 Year
  Sex: Male

DRUGS (2)
  1. PROCHLORPERAZINE (PROCHLORPERAZINE 5MG/ML INJ) [Suspect]
     Active Substance: PROCHLORPERAZINE
     Indication: NAUSEA
     Route: 042
     Dates: start: 20190814
  2. PROCHLORPERAZINE (PROCHLORPERAZINE 5MG/ML INJ) [Suspect]
     Active Substance: PROCHLORPERAZINE
     Indication: VOMITING
     Route: 042
     Dates: start: 20190814

REACTIONS (3)
  - Anaphylactic reaction [None]
  - Cough [None]
  - Wheezing [None]

NARRATIVE: CASE EVENT DATE: 20190815
